FAERS Safety Report 7238109-X (Version None)
Quarter: 2011Q1

REPORT INFORMATION
  Report Type: 
  Country: None (occurrence: None)
  Receive Date: 20110121
  Receipt Date: 20110113
  Transmission Date: 20110831
  Serious: Yes (Death, Other)
  Sender: FDA-Public Use
  Company Number: JP-AMGEN-JPNCT2011003784

PATIENT

DRUGS (6)
  1. CINAL [Concomitant]
     Route: 048
  2. PATELL TAPE [Concomitant]
     Route: 062
  3. PANITUMUMAB [Suspect]
     Indication: COLORECTAL CANCER
     Dosage: UNK
     Route: 041
     Dates: start: 20100902, end: 20100930
  4. MAGLAX [Concomitant]
     Route: 048
  5. FERROUS CITRATE [Concomitant]
     Route: 048
  6. PARIET [Concomitant]
     Route: 048

REACTIONS (12)
  - SEPSIS [None]
  - COLORECTAL CANCER [None]
  - NAUSEA [None]
  - DECREASED APPETITE [None]
  - FATIGUE [None]
  - BLOOD CREATININE INCREASED [None]
  - URINARY TRACT INFECTION [None]
  - DIARRHOEA [None]
  - ANAEMIA [None]
  - VOMITING [None]
  - PLATELET COUNT DECREASED [None]
  - RASH [None]
